FAERS Safety Report 10328461 (Version 1)
Quarter: 2014Q3

REPORT INFORMATION
  Report Type: Spontaneous
  Country: US (occurrence: US)
  Receive Date: 20140721
  Receipt Date: 20140721
  Transmission Date: 20150326
  Serious: Yes (Hospitalization)
  Sender: FDA-Public Use
  Company Number: US-ROCHE-1436260

PATIENT
  Sex: Male

DRUGS (2)
  1. RITUXAN [Suspect]
     Active Substance: RITUXIMAB
     Indication: NON-HODGKIN^S LYMPHOMA
     Dosage: LAST DOSE ON 26/FEB/2014
     Route: 042
  2. BENADRYL [Concomitant]
     Active Substance: DIPHENHYDRAMINE HYDROCHLORIDE

REACTIONS (9)
  - Pain [Unknown]
  - Lip blister [Unknown]
  - Weight decreased [Unknown]
  - Oral mucosal blistering [Unknown]
  - Mouth ulceration [Unknown]
  - Stomatitis [Unknown]
  - Dehydration [Unknown]
  - Aphagia [Unknown]
  - Stomatitis necrotising [Unknown]
